FAERS Safety Report 24703110 (Version 3)
Quarter: 2025Q1

REPORT INFORMATION
  Report Type: Spontaneous
  Country: GB (occurrence: GB)
  Receive Date: 20241205
  Receipt Date: 20250225
  Transmission Date: 20250409
  Serious: Yes (Other)
  Sender: PFIZER
  Company Number: GB-LDELTA-2024001210

PATIENT
  Age: 52 Year
  Sex: Female

DRUGS (5)
  1. RITUXIMAB [Suspect]
     Active Substance: RITUXIMAB
     Indication: B-cell lymphoma
     Dates: start: 20240909, end: 20250109
  2. VINCRISTINE SULFATE [Suspect]
     Active Substance: VINCRISTINE SULFATE
     Indication: B-cell lymphoma
     Dates: start: 20240903, end: 20250109
  3. CLOZAPINE [Suspect]
     Active Substance: CLOZAPINE
     Dosage: 275 MG, 1X/DAY
     Dates: start: 20090202, end: 202502
  4. CYCLOPHOSPHAMIDE [Suspect]
     Active Substance: CYCLOPHOSPHAMIDE
     Indication: B-cell lymphoma
     Dates: start: 20240903, end: 20250109
  5. PREDNISOLONE [Concomitant]
     Active Substance: PREDNISOLONE
     Dates: start: 202409, end: 20250109

REACTIONS (8)
  - Faecaloma [Not Recovered/Not Resolved]
  - Uterine mass [Not Recovered/Not Resolved]
  - Endometrial neoplasm [Not Recovered/Not Resolved]
  - Neoplasm progression [Not Recovered/Not Resolved]
  - Neutrophil count decreased [Recovered/Resolved]
  - White blood cell count decreased [Recovered/Resolved]
  - Constipation [Not Recovered/Not Resolved]
  - Off label use [Recovered/Resolved]

NARRATIVE: CASE EVENT DATE: 20240903
